FAERS Safety Report 10790336 (Version 4)
Quarter: 2015Q1

REPORT INFORMATION
  Report Type: Spontaneous
  Country: KR (occurrence: KR)
  Receive Date: 20150212
  Receipt Date: 20150330
  Transmission Date: 20150721
  Serious: Yes (Other)
  Sender: FDA-Public Use
  Company Number: KR-BRACCO-000041

PATIENT
  Age: 53 Year
  Sex: Male

DRUGS (9)
  1. TWYNSTA [Concomitant]
     Active Substance: AMLODIPINE BESYLATE\TELMISARTAN
     Dosage: 40MG+5MG/TAB
     Dates: end: 20150202
  2. LANSTON [Concomitant]
     Active Substance: LANSOPRAZOLE
     Dates: end: 20150202
  3. THIAMINE [Concomitant]
     Active Substance: THIAMINE
     Dates: end: 20150202
  4. STILNOX [Concomitant]
     Active Substance: ZOLPIDEM TARTRATE
     Dates: end: 20150202
  5. INDENOL [Concomitant]
     Active Substance: PROPRANOLOL HYDROCHLORIDE
     Dates: end: 20150202
  6. SONOVUE [Suspect]
     Active Substance: SULFUR HEXAFLUORIDE
     Indication: IMAGING PROCEDURE
     Route: 042
     Dates: start: 20150203, end: 20150203
  7. STILLEN [Concomitant]
     Dosage: 60 MG , 3 TABS
     Dates: end: 20150202
  8. PENNEL [Concomitant]
     Dosage: 3 CAPSULES
     Dates: end: 20150202
  9. LORAVAN [Concomitant]
     Dates: end: 20150202

REACTIONS (2)
  - Contrast media reaction [None]
  - Shock [Recovered/Resolved]

NARRATIVE: CASE EVENT DATE: 20150203
